FAERS Safety Report 5933758-0 (Version None)
Quarter: 2008Q4

REPORT INFORMATION
  Report Type: 
  Country: None (occurrence: None)
  Receive Date: 20081024
  Receipt Date: 20080707
  Transmission Date: 20090506
  Serious: Yes (Hospitalization)
  Sender: FDA-Public Use
  Company Number: CL000412008

PATIENT
  Age: 66 Year
  Sex: Female

DRUGS (10)
  1. CIPROFLOXACIN [Suspect]
     Dosage: 100MG,
     Dates: start: 20080622, end: 20080628
  2. ASPIRIN [Concomitant]
  3. CANDESARTAN CILEXETIL [Concomitant]
  4. DIGOXIN [Concomitant]
  5. GLICLAZIDE [Concomitant]
  6. METFORMIN HCL [Concomitant]
  7. OXYBUTYNIN [Concomitant]
  8. ROSUVASTATIN [Concomitant]
  9. THEOPHYLLINE [Concomitant]
  10. VERAPAMIL [Concomitant]

REACTIONS (1)
  - ARTHRALGIA [None]
